FAERS Safety Report 5187701-5 (Version None)
Quarter: 2006Q4

REPORT INFORMATION
  Report Type: 
  Country: None (occurrence: None)
  Receive Date: 20061221
  Receipt Date: 20060823
  Transmission Date: 20070319
  Serious: Yes (Other)
  Sender: FDA-Public Use
  Company Number: US-BAYER-200615247BWH

PATIENT
  Age: 70 Year
  Sex: Female

DRUGS (4)
  1. SORAFENIB [Suspect]
     Indication: METASTATIC RENAL CELL CARCINOMA
     Dosage: TOTAL DAILY DOSE: 800 MG  UNIT DOSE: 200 MG
     Route: 048
  2. SORAFENIB [Suspect]
     Dosage: UNIT DOSE: 200 MG
     Route: 048
  3. TIPIFARNIB [Suspect]
     Indication: METASTATIC RENAL CELL CARCINOMA
     Dosage: TOTAL DAILY DOSE: 200 MG
     Route: 048
  4. TIPIFARNIB [Suspect]
     Route: 048

REACTIONS (3)
  - RASH MACULAR [None]
  - SQUAMOUS CELL CARCINOMA [None]
  - URTICARIA [None]
